FAERS Safety Report 11921139 (Version 1)
Quarter: 2016Q1

REPORT INFORMATION
  Report Type: Spontaneous
  Country: US (occurrence: US)
  Receive Date: 20160115
  Receipt Date: 20160115
  Transmission Date: 20160526
  Serious: No
  Sender: FDA-Public Use
  Company Number: US-ASTELLAS-2015US041366

PATIENT
  Sex: Female

DRUGS (2)
  1. MYRBETRIQ [Suspect]
     Active Substance: MIRABEGRON
     Indication: POLLAKIURIA
  2. MYRBETRIQ [Suspect]
     Active Substance: MIRABEGRON
     Indication: HYPERTONIC BLADDER
     Route: 048
     Dates: start: 20151015, end: 20151015

REACTIONS (8)
  - Feeling hot [Unknown]
  - Dizziness [Unknown]
  - Intentional product misuse [Unknown]
  - Headache [Unknown]
  - Visual impairment [Unknown]
  - Vision blurred [Unknown]
  - Drug ineffective [Unknown]
  - Delirium [Unknown]
